FAERS Safety Report 18947336 (Version 1)
Quarter: 2021Q1

REPORT INFORMATION
  Report Type: Spontaneous
  Country: CH (occurrence: CH)
  Receive Date: 20210226
  Receipt Date: 20210226
  Transmission Date: 20210420
  Serious: Yes (Hospitalization)
  Sender: FDA-Public Use
  Company Number: CH-BIOGEN-2021BI00981967

PATIENT
  Age: 56 Year
  Sex: Female
  Weight: 60 kg

DRUGS (6)
  1. NEURONTIN [Suspect]
     Active Substance: GABAPENTIN
     Indication: MULTIPLE SCLEROSIS
     Dosage: 300MG?300MG?400MG?0
     Route: 048
  2. OCREVUS [Suspect]
     Active Substance: OCRELIZUMAB
     Indication: MULTIPLE SCLEROSIS
     Dosage: OCREVUS (OCRELIZUMAB) 600MG I.V. EVERY 6 MONTHS SINCE 07/2018
     Route: 040
     Dates: start: 201807
  3. BUCCO?TANTUM [Concomitant]
     Indication: PRODUCT USED FOR UNKNOWN INDICATION
     Dosage: BUCCO?TANTUM (BENZYDAMINE) SPRAY LOCALLY UP TO 6 TIMES/DAY SINCE 12/12/2020
     Route: 002
     Dates: start: 20201212
  4. FAMPYRA [Suspect]
     Active Substance: DALFAMPRIDINE
     Indication: MULTIPLE SCLEROSIS
     Dosage: 10MG 1?0?1
     Route: 048
     Dates: start: 20201120
  5. NEURONTIN [Suspect]
     Active Substance: GABAPENTIN
     Dosage: 300MG?300MG?400MG?0
     Route: 048
  6. BETMIGA [Suspect]
     Active Substance: MIRABEGRON
     Indication: HYPERTONIC BLADDER
     Dosage: 50MG 1?0?0?0
     Route: 048

REACTIONS (1)
  - Immune thrombocytopenia [Recovered/Resolved]

NARRATIVE: CASE EVENT DATE: 20201211
